FAERS Safety Report 8301055-4 (Version None)
Quarter: 2012Q2

REPORT INFORMATION
  Report Type: 
  Country: None (occurrence: None)
  Receive Date: 20120420
  Receipt Date: 20120411
  Transmission Date: 20120825
  Serious: Yes (Other)
  Sender: FDA-Public Use
  Company Number: US-JNJFOC-20120405645

PATIENT
  Age: 6 Decade
  Sex: Male

DRUGS (2)
  1. TORADOL [Concomitant]
  2. XARELTO [Suspect]
     Indication: KNEE OPERATION
     Route: 048
     Dates: start: 20120208, end: 20120212

REACTIONS (1)
  - HAEMATOMA [None]
